FAERS Safety Report 24835504 (Version 2)
Quarter: 2025Q1

REPORT INFORMATION
  Report Type: Other
  Country: CA (occurrence: CA)
  Receive Date: 20250113
  Receipt Date: 20250123
  Transmission Date: 20250409
  Serious: Yes (Other)
  Sender: TOLMAR
  Company Number: CA-20241223-0d2002

PATIENT
  Sex: Male

DRUGS (6)
  1. ELIGARD [Suspect]
     Active Substance: LEUPROLIDE ACETATE
     Indication: Prostate cancer
     Dosage: 45 MILLIGRAM, Q 6 MONTH
     Route: 058
     Dates: start: 20241223
  2. ELIGARD [Suspect]
     Active Substance: LEUPROLIDE ACETATE
     Dosage: 45 MILLIGRAM, Q 6 MONTH
     Route: 058
     Dates: start: 20220905
  3. ELIGARD [Suspect]
     Active Substance: LEUPROLIDE ACETATE
     Indication: Prostate cancer
     Route: 058
  4. PREGABALIN [Concomitant]
     Active Substance: PREGABALIN
     Indication: Product used for unknown indication
  5. GABAPENTIN [Concomitant]
     Active Substance: GABAPENTIN
     Indication: Product used for unknown indication
  6. RADIATION THERAPY [Concomitant]
     Active Substance: RADIATION THERAPY
     Indication: Product used for unknown indication

REACTIONS (4)
  - Prostatitis [Unknown]
  - Urinary retention [Unknown]
  - Prostatic specific antigen increased [Unknown]
  - Herpes zoster [Unknown]
